FAERS Safety Report 5408876-6 (Version None)
Quarter: 2007Q3

REPORT INFORMATION
  Report Type: 
  Country: None (occurrence: None)
  Receive Date: 20070808
  Receipt Date: 20070731
  Transmission Date: 20080115
  Serious: Yes (Hospitalization)
  Sender: FDA-Public Use
  Company Number: GB-BOEHRINGER INGELHEIM PHARMACEUTICALS, INC.-2007-DE-04516GD

PATIENT

DRUGS (2)
  1. RANITIDINE [Suspect]
     Indication: DYSPEPSIA
  2. GAVISCON [Suspect]
     Indication: DYSPEPSIA

REACTIONS (1)
  - DRUG INEFFECTIVE [None]
